FAERS Safety Report 6244295-0 (Version None)
Quarter: 2009Q2

REPORT INFORMATION
  Report Type: 
  Country: None (occurrence: None)
  Receive Date: 20090623
  Receipt Date: 20090623
  Transmission Date: 20091009
  Serious: Yes (Other)
  Sender: FDA-Public Use
  Company Number: None

PATIENT
  Sex: Male
  Weight: 100 kg

DRUGS (1)
  1. SUCCINYLCHOLINE CHLORIDE [Suspect]
     Indication: GENERAL ANAESTHESIA
     Dosage: 120MG IV
     Route: 042
     Dates: start: 20090617

REACTIONS (2)
  - BOWEL MOVEMENT IRREGULARITY [None]
  - DRUG INEFFECTIVE [None]
